FAERS Safety Report 4659965-5 (Version None)
Quarter: 2005Q2

REPORT INFORMATION
  Report Type: 
  Country: None (occurrence: None)
  Receive Date: 20050510
  Receipt Date: 20050426
  Transmission Date: 20051028
  Serious: Yes (Life-Threatening, Hospitalization, Other)
  Sender: FDA-Public Use
  Company Number: 2005066791

PATIENT
  Age: 56 Year
  Sex: Male

DRUGS (4)
  1. NAVANE [Suspect]
     Indication: ILL-DEFINED DISORDER
     Dosage: 5 MG ORAL
     Route: 048
  2. PROCYCLIDINE HYDROCHLORIDE (PROCYCLIDINE HYDROCHLORIDE) [Concomitant]
  3. BENZTROPINE MESYLATE [Concomitant]
  4. EPINEPHRINE [Concomitant]

REACTIONS (11)
  - ACCIDENT [None]
  - BODY HEIGHT DECREASED [None]
  - FATIGUE [None]
  - HAEMORRHAGE [None]
  - INTERVERTEBRAL DISC PROTRUSION [None]
  - MALAISE [None]
  - OVERDOSE [None]
  - OVERWEIGHT [None]
  - SCAR [None]
  - SKIN DISORDER [None]
  - SLEEP DISORDER [None]
